FAERS Safety Report 4924961-7 (Version None)
Quarter: 2006Q1

REPORT INFORMATION
  Report Type: 
  Country: None (occurrence: None)
  Receive Date: 20060222
  Receipt Date: 20060213
  Transmission Date: 20060701
  Serious: Yes (Life-Threatening, Hospitalization)
  Sender: FDA-Public Use
  Company Number: TCI2006A00663

PATIENT
  Age: 35 Year
  Sex: Male

DRUGS (4)
  1. ACTOS [Suspect]
     Indication: DIABETES MELLITUS
     Dosage: SEE IMAGE
     Route: 048
     Dates: start: 20051203, end: 20060106
  2. ACTOS [Suspect]
     Indication: DIABETES MELLITUS
     Dosage: SEE IMAGE
     Route: 048
     Dates: start: 20060107, end: 20060204
  3. BASEN OD                             (VOGLIBOSE) [Concomitant]
  4. DIAMOX [Concomitant]

REACTIONS (8)
  - ASTHENIA [None]
  - BLOOD CREATINE PHOSPHOKINASE INCREASED [None]
  - DIABETIC COMPLICATION [None]
  - EYE HAEMORRHAGE [None]
  - HYPOAESTHESIA [None]
  - HYPOKALAEMIA [None]
  - MYALGIA [None]
  - NERVE INJURY [None]
